FAERS Safety Report 8005523-4 (Version None)
Quarter: 2011Q4

REPORT INFORMATION
  Report Type: 
  Country: None (occurrence: None)
  Receive Date: 20111223
  Receipt Date: 20111219
  Transmission Date: 20120403
  Serious: Yes (Other)
  Sender: FDA-Public Use
  Company Number: US-PFIZER INC-2011308704

PATIENT
  Sex: Female
  Weight: 88.435 kg

DRUGS (2)
  1. EFFEXOR XR [Suspect]
     Indication: SLEEP TERROR
     Dosage: 75 MG (TWO 37.5 MG), DAILY
  2. EFFEXOR XR [Suspect]
     Indication: INSOMNIA

REACTIONS (3)
  - NIGHTMARE [None]
  - DRUG DEPENDENCE [None]
  - CRYING [None]
